FAERS Safety Report 9596900 (Version 1)
Quarter: 2013Q4

REPORT INFORMATION
  Report Type: Spontaneous
  Country: US (occurrence: US)
  Receive Date: 20131004
  Receipt Date: 20131004
  Transmission Date: 20140711
  Serious: Yes (Hospitalization, Other)
  Sender: FDA-Public Use
  Company Number: CHPA2013US015081

PATIENT
  Age: 74 Year
  Sex: Female

DRUGS (2)
  1. 4 WAY UNKNOWN [Suspect]
     Indication: OFF LABEL USE
     Dosage: UNK, UNK
     Route: 045
  2. 4 WAY UNKNOWN [Suspect]
     Indication: NASAL DRYNESS

REACTIONS (2)
  - Dyspnoea [Recovered/Resolved]
  - Therapeutic response unexpected [Unknown]
